FAERS Safety Report 16163051 (Version 4)
Quarter: 2019Q2

REPORT INFORMATION
  Report Type: Spontaneous
  Country: CO (occurrence: CO)
  Receive Date: 20190405
  Receipt Date: 20190513
  Transmission Date: 20190711
  Serious: Yes (Death, Hospitalization)
  Sender: FDA-Public Use
  Company Number: CO-CELGENEUS-COL-20180100505

PATIENT
  Age: 69 Year
  Sex: Female

DRUGS (1)
  1. VIDAZA [Suspect]
     Active Substance: AZACITIDINE
     Indication: ACUTE MYELOID LEUKAEMIA
     Dosage: 100 MILLIGRAM
     Route: 058
     Dates: start: 20170914, end: 20190108

REACTIONS (11)
  - Dizziness [Unknown]
  - Malaise [Not Recovered/Not Resolved]
  - Abdominal pain [Recovered/Resolved]
  - Hypotension [Not Recovered/Not Resolved]
  - Acute myeloid leukaemia recurrent [Fatal]
  - Chills [Not Recovered/Not Resolved]
  - Pyrexia [Not Recovered/Not Resolved]
  - Pyrexia [Recovering/Resolving]
  - Headache [Unknown]
  - Abdominal pain [Not Recovered/Not Resolved]
  - Decreased appetite [Unknown]

NARRATIVE: CASE EVENT DATE: 20171212
